FAERS Safety Report 8273498-9 (Version None)
Quarter: 2012Q2

REPORT INFORMATION
  Report Type: 
  Country: None (occurrence: None)
  Receive Date: 20120409
  Receipt Date: 20120409
  Transmission Date: 20120825
  Serious: No
  Sender: FDA-Public Use
  Company Number: None

PATIENT

DRUGS (1)
  1. AFINITOR [Suspect]
     Indication: NERVOUS SYSTEM DISORDER
     Dosage: 10MG TABLET PO TAKE 1 TABLET BY MOUTH EVERY DAY
     Route: 048
     Dates: start: 20120405

REACTIONS (2)
  - PARAESTHESIA ORAL [None]
  - HYPOAESTHESIA ORAL [None]
